FAERS Safety Report 24724582 (Version 1)
Quarter: 2024Q4

REPORT INFORMATION
  Report Type: Report from Study
  Country: IN (occurrence: IN)
  Receive Date: 20241212
  Receipt Date: 20241212
  Transmission Date: 20250114
  Serious: Yes (Hospitalization)
  Sender: ROCHE
  Company Number: IN-ROCHE-3571846

PATIENT
  Age: 56 Year
  Sex: Female

DRUGS (1)
  1. TECENTRIQ [Suspect]
     Active Substance: ATEZOLIZUMAB
     Indication: Hepatocellular carcinoma
     Route: 041
     Dates: start: 20240223

REACTIONS (7)
  - Asthenia [Unknown]
  - Neutropenia [Unknown]
  - Haemoglobin decreased [Unknown]
  - Platelet count decreased [Unknown]
  - Hypertension [Unknown]
  - Internal haemorrhage [Unknown]
  - Feeding disorder [Unknown]
